FAERS Safety Report 8004137 (Version 2)
Quarter: 2012Q4

REPORT INFORMATION
  Report Type: 
  Country: IT (occurrence: IT)
  Receive Date: 20110623
  Receipt Date: 20121015
  Transmission Date: 20130627
  Serious: Yes (Hospitalization)
  Sender: FDA-Public Use
  Company Number: IT-ELI_LILLY_AND_COMPANY-IT201106004075

PATIENT
  Age: 69 Year
  Sex: Female

DRUGS (1)
  1. ALIMTA [Suspect]
     Indication: LUNG ADENOCARCINOMA
     Dosage: 530 UNK, unknown
     Route: 042
     Dates: start: 20101104, end: 20101214

REACTIONS (2)
  - Gastrointestinal toxicity [Recovered/Resolved with Sequelae]
  - Haematotoxicity [Recovered/Resolved with Sequelae]
